FAERS Safety Report 21595814 (Version 1)
Quarter: 2022Q4

REPORT INFORMATION
  Report Type: Spontaneous
  Country: US (occurrence: US)
  Receive Date: 20221115
  Receipt Date: 20221115
  Transmission Date: 20230113
  Serious: Yes (Death)
  Sender: FDA-Public Use
  Company Number: US-SAGENT PHARMACEUTICALS-2022SAG002325

PATIENT

DRUGS (4)
  1. FLUOROURACIL [Suspect]
     Active Substance: FLUOROURACIL
     Indication: Adenocarcinoma gastric
     Dosage: 400 MG/M? BOLUS FOLLOWED BY 2400 MG/M? OVER APPROXIMATELY 46 H)
     Route: 042
  2. LEUCOVORIN CALCIUM [Suspect]
     Active Substance: LEUCOVORIN CALCIUM
     Indication: Adenocarcinoma gastric
     Dosage: 400 MG/M?, UNK
     Route: 042
  3. OXALIPLATIN [Suspect]
     Active Substance: OXALIPLATIN
     Indication: Adenocarcinoma gastric
     Dosage: 85 MG/M?, UNK
     Route: 042
  4. BEMARITUZUMAB [Suspect]
     Active Substance: BEMARITUZUMAB
     Indication: Adenocarcinoma gastric
     Dosage: 15 MILLIGRAM/KILOGRAM Q2W
     Route: 042

REACTIONS (1)
  - Pneumonia [Fatal]
